FAERS Safety Report 12592648 (Version 1)
Quarter: 2016Q3

REPORT INFORMATION
  Report Type: Spontaneous
  Country: GN (occurrence: GN)
  Receive Date: 20160726
  Receipt Date: 20160726
  Transmission Date: 20161109
  Serious: Yes (Death, Hospitalization)
  Sender: FDA-Public Use
  Company Number: GN-STRIDES ARCOLAB LIMITED-2016SP010243

PATIENT

DRUGS (4)
  1. NEVIRAPINE. [Suspect]
     Active Substance: NEVIRAPINE
     Indication: HIV INFECTION
     Dosage: 200 MG, UNK
  2. NEVIRAPINE. [Suspect]
     Active Substance: NEVIRAPINE
     Indication: PROPHYLAXIS AGAINST HIV INFECTION
  3. LAMIVUDINE AND ZIDOVUDINE TABLETS [Suspect]
     Active Substance: LAMIVUDINE\ZIDOVUDINE
     Indication: HIV INFECTION
     Dosage: UNK
  4. LAMIVUDINE AND ZIDOVUDINE TABLETS [Suspect]
     Active Substance: LAMIVUDINE\ZIDOVUDINE
     Indication: PROPHYLAXIS AGAINST HIV INFECTION

REACTIONS (12)
  - Premature delivery [Unknown]
  - Toxic epidermal necrolysis [Fatal]
  - Nikolsky^s sign [Unknown]
  - Oral mucosa erosion [Unknown]
  - Wound secretion [Unknown]
  - Conjunctival erosion [Unknown]
  - Exposure during pregnancy [Unknown]
  - Genital erosion [Unknown]
  - Skin exfoliation [Unknown]
  - General physical health deterioration [Unknown]
  - Dermatitis bullous [Unknown]
  - Skin erosion [Unknown]
